FAERS Safety Report 4480090-0 (Version None)
Quarter: 2004Q3

REPORT INFORMATION
  Report Type: 
  Country: None (occurrence: None)
  Receive Date: 20040923
  Receipt Date: 20040805
  Transmission Date: 20050211
  Serious: No
  Sender: FDA-Public Use
  Company Number: USA040669455

PATIENT
  Age: 75 Year
  Sex: Female
  Weight: 52 kg

DRUGS (10)
  1. FORTEO [Suspect]
     Indication: OSTEOPOROSIS
     Dosage: 20 UG SDAY
     Dates: start: 20040601
  2. PLAVIX [Concomitant]
  3. ATENOLOL [Concomitant]
  4. COZAAR [Concomitant]
  5. FOSAMAX [Concomitant]
  6. MIACALCIN [Concomitant]
  7. PREVACID [Concomitant]
  8. LIBRAX [Concomitant]
  9. MYLANTA [Concomitant]
  10. ASPIRIN [Concomitant]

REACTIONS (8)
  - ARTHRALGIA [None]
  - DYSPEPSIA [None]
  - FEELING ABNORMAL [None]
  - GASTROINTESTINAL DISORDER [None]
  - INJECTION SITE ERYTHEMA [None]
  - MYALGIA [None]
  - PAIN IN EXTREMITY [None]
  - POLLAKIURIA [None]
